FAERS Safety Report 8041869-1 (Version None)
Quarter: 2012Q1

REPORT INFORMATION
  Report Type: 
  Country: None (occurrence: None)
  Receive Date: 20120112
  Receipt Date: 20120106
  Transmission Date: 20120608
  Serious: Yes (Hospitalization)
  Sender: FDA-Public Use
  Company Number: US-VIROPHARMA INCORPORATED-20120106CINRY2550

PATIENT
  Sex: Male

DRUGS (7)
  1. CYCLOBENZAPRINE [Concomitant]
     Indication: PRODUCT USED FOR UNKNOWN INDICATION
  2. PRILOSEC [Concomitant]
     Indication: GASTROOESOPHAGEAL REFLUX DISEASE
  3. GEMFIBROZIL [Concomitant]
     Indication: PRODUCT USED FOR UNKNOWN INDICATION
  4. AMLODIPINE [Concomitant]
     Indication: HYPERTENSION
  5. FLOMAX [Concomitant]
     Indication: CHRONIC OBSTRUCTIVE PULMONARY DISEASE
  6. LISINOPRIL [Concomitant]
     Indication: HYPERTENSION
  7. CINRYZE [Suspect]
     Indication: HEREDITARY ANGIOEDEMA

REACTIONS (3)
  - CARDIAC ARREST [None]
  - COMA [None]
  - GASTROINTESTINAL ULCER HAEMORRHAGE [None]
